FAERS Safety Report 7346860-6 (Version None)
Quarter: 2011Q1

REPORT INFORMATION
  Report Type: 
  Country: None (occurrence: None)
  Receive Date: 20110311
  Receipt Date: 20110228
  Transmission Date: 20110831
  Serious: Yes (Life-Threatening)
  Sender: FDA-Public Use
  Company Number: JP-AMGEN-JPNCT2011005304

PATIENT
  Age: 71 Year
  Sex: Female
  Weight: 44 kg

DRUGS (1)
  1. PANITUMUMAB [Suspect]
     Indication: COLORECTAL CANCER
     Dosage: 6 MG/KG, Q2WK
     Route: 042
     Dates: start: 20100818, end: 20101222

REACTIONS (2)
  - DERMATITIS [None]
  - INTESTINAL OBSTRUCTION [None]
